FAERS Safety Report 5766008-9 (Version None)
Quarter: 2008Q2

REPORT INFORMATION
  Report Type: 
  Country: None (occurrence: None)
  Receive Date: 20080611
  Receipt Date: 20080520
  Transmission Date: 20081010
  Serious: Yes (Hospitalization)
  Sender: FDA-Public Use
  Company Number: BR-PFIZER INC-2008043888

PATIENT
  Sex: Female
  Weight: 66.5 kg

DRUGS (13)
  1. MARAVIROC [Suspect]
     Indication: HIV INFECTION
     Route: 048
     Dates: start: 20080408, end: 20080501
  2. DARUNAVIR [Suspect]
     Indication: HIV INFECTION
     Route: 048
     Dates: start: 20080408, end: 20080501
  3. TENOFOVIR DISOPROXIL FUMARATE [Concomitant]
     Route: 048
     Dates: start: 20080408, end: 20080501
  4. RITONAVIR [Concomitant]
     Route: 048
     Dates: start: 20080408, end: 20080501
  5. ZIDOVUDINE [Concomitant]
     Route: 048
     Dates: start: 20080408, end: 20080501
  6. LAMIVUDINE [Concomitant]
     Route: 048
     Dates: start: 20080408, end: 20080501
  7. ENFUVIRTIDE [Concomitant]
     Route: 048
     Dates: start: 20080408, end: 20080507
  8. CIPROFLOXACIN HCL [Concomitant]
     Route: 048
     Dates: start: 20080422, end: 20080428
  9. PREDNISONE TAB [Concomitant]
     Route: 048
     Dates: start: 20080428, end: 20080430
  10. HYOSCINE [Concomitant]
     Route: 048
  11. DEXCHLORPHENIRAMINE [Concomitant]
     Route: 048
     Dates: start: 20080428, end: 20080430
  12. BACTRIM [Concomitant]
     Route: 048
  13. DIPIRONA [Concomitant]
     Route: 048

REACTIONS (4)
  - ABDOMINAL PAIN [None]
  - ANOREXIA [None]
  - NAUSEA [None]
  - VOMITING [None]
